FAERS Safety Report 9538796 (Version 1)
Quarter: 2013Q2

REPORT INFORMATION
  Report Type: Spontaneous
  Country: US (occurrence: None)
  Receive Date: 20130507
  Receipt Date: 20130507
  Transmission Date: 20140414
  Serious: No
  Sender: FDA-Public Use
  Company Number: PHEH2012US025445

PATIENT
  Age: 72 Year
  Sex: Female
  Weight: 70.3 kg

DRUGS (6)
  1. AFINITOR (RAD) TABLET, 10MG [Suspect]
     Route: 048
  2. EXEMESTANE [Concomitant]
  3. ASA [Concomitant]
  4. VITAMIN D3 [Suspect]
  5. CALCIUM + D [Concomitant]
  6. AMBIEN CR [Concomitant]

REACTIONS (3)
  - Tachycardia [None]
  - Hypertension [None]
  - Dizziness [None]
